FAERS Safety Report 25319903 (Version 1)
Quarter: 2025Q2

REPORT INFORMATION
  Report Type: Spontaneous
  Country: CN (occurrence: CN)
  Receive Date: 20250515
  Receipt Date: 20250515
  Transmission Date: 20250717
  Serious: Yes (Other)
  Sender: PFIZER
  Company Number: CN-PFIZER INC-202500100800

PATIENT
  Age: 4 Month
  Sex: Male
  Weight: 4.5 kg

DRUGS (1)
  1. METHYLPREDNISOLONE [Suspect]
     Active Substance: METHYLPREDNISOLONE

REACTIONS (1)
  - Stenotrophomonas infection [Recovering/Resolving]
